FAERS Safety Report 6062749-7 (Version None)
Quarter: 2009Q1

REPORT INFORMATION
  Report Type: 
  Country: None (occurrence: None)
  Receive Date: 20090202
  Receipt Date: 20090202
  Transmission Date: 20090719
  Serious: No
  Sender: FDA-Public Use
  Company Number: None

PATIENT
  Sex: Female
  Weight: 113.3993 kg

DRUGS (1)
  1. LAMICTAL [Suspect]
     Dosage: 500 MG 2 DAILY PO
     Route: 048
     Dates: start: 20050101, end: 20090131

REACTIONS (1)
  - THYROID NEOPLASM [None]
